FAERS Safety Report 25169369 (Version 1)
Quarter: 2025Q2

REPORT INFORMATION
  Report Type: Report from Study
  Country: US (occurrence: US)
  Receive Date: 20250407
  Receipt Date: 20250407
  Transmission Date: 20250717
  Serious: Yes (Other)
  Sender: ALEXION PHARMACEUTICALS
  Company Number: US-ASTRAZENECA-A202302913

PATIENT
  Age: 8 Year

DRUGS (1)
  1. STRENSIQ [Suspect]
     Active Substance: ASFOTASE ALFA
     Indication: Phosphorus metabolism disorder
     Dosage: 40 MILLIGRAM, TIW
     Route: 065

REACTIONS (4)
  - Lower respiratory tract infection [Unknown]
  - Tooth loss [Not Recovered/Not Resolved]
  - Injection site reaction [Not Recovered/Not Resolved]
  - Influenza [Unknown]
